FAERS Safety Report 17315349 (Version 1)
Quarter: 2020Q1

REPORT INFORMATION
  Report Type: Spontaneous
  Country: US (occurrence: US)
  Receive Date: 20200124
  Receipt Date: 20200124
  Transmission Date: 20200409
  Serious: Yes (Hospitalization)
  Sender: FDA-Public Use
  Company Number: US-009507513-2001USA007823

PATIENT
  Age: 2 Year
  Sex: Female
  Weight: 13 kg

DRUGS (3)
  1. PROVENTIL [Suspect]
     Active Substance: ALBUTEROL
     Dosage: UNK
  2. PROVENTIL [Suspect]
     Active Substance: ALBUTEROL
     Dosage: 2 DOSES
  3. PROVENTIL [Suspect]
     Active Substance: ALBUTEROL
     Dosage: 2.5 MG

REACTIONS (2)
  - Supraventricular tachycardia [Recovered/Resolved]
  - Product use issue [Unknown]
